FAERS Safety Report 13184997 (Version 2)
Quarter: 2017Q1

REPORT INFORMATION
  Report Type: Report from Study
  Country: None (occurrence: CA)
  Receive Date: 20170203
  Receipt Date: 20170208
  Transmission Date: 20170428
  Serious: Yes (Other)
  Sender: FDA-Public Use
  Company Number: CA-ABBVIE-17P-028-1860327-00

PATIENT
  Sex: Female
  Weight: 50.85 kg

DRUGS (1)
  1. HUMIRA [Suspect]
     Active Substance: ADALIMUMAB
     Indication: PSORIATIC ARTHROPATHY
     Route: 058
     Dates: start: 20100521

REACTIONS (6)
  - Arteriosclerosis [Not Recovered/Not Resolved]
  - Vascular occlusion [Not Recovered/Not Resolved]
  - Injection site pain [Not Recovered/Not Resolved]
  - Psoriatic arthropathy [Not Recovered/Not Resolved]
  - Muscle twitching [Not Recovered/Not Resolved]
  - Weight decreased [Not Recovered/Not Resolved]
